FAERS Safety Report 9836203 (Version 2)
Quarter: 2014Q1

REPORT INFORMATION
  Report Type: Spontaneous
  Country: BR (occurrence: BR)
  Receive Date: 20140123
  Receipt Date: 20140130
  Transmission Date: 20141002
  Serious: Yes (Other)
  Sender: FDA-Public Use
  Company Number: PHHY2014BR004456

PATIENT
  Sex: Male

DRUGS (10)
  1. TOFRANIL [Suspect]
     Indication: PANIC DISORDER
     Dosage: UNK UKN, UNK
  2. ANAFRANIL [Suspect]
     Indication: PANIC DISORDER
     Dosage: UNK UKN, UNK
  3. FLUOXETINE [Suspect]
     Indication: PANIC DISORDER
     Dosage: UNK UKN, UNK
  4. RISPERIDONE [Suspect]
     Indication: PANIC DISORDER
     Dosage: UNK UKN, UNK
  5. TRANXILENE [Suspect]
     Indication: PANIC DISORDER
     Dosage: UNK UKN, UNK
  6. LORAX [Suspect]
     Indication: PANIC DISORDER
     Dosage: UNK UKN, UNK
  7. ESCITALOPRAM [Suspect]
     Indication: PANIC DISORDER
     Dosage: UNK UKN, UNK
  8. AMITRIPTYLINE [Suspect]
     Indication: PANIC DISORDER
     Dosage: UNK UKN, UNK
  9. VENLAFAXINE [Suspect]
     Indication: PANIC DISORDER
     Dosage: UNK UKN, UNK
  10. RIVOTRIL [Suspect]
     Dosage: 2 MG, BID (MORNING AND NIGHT)

REACTIONS (4)
  - Drug dependence [Unknown]
  - Panic disorder [Unknown]
  - Visual impairment [Unknown]
  - Asthenia [Unknown]
